FAERS Safety Report 21437428 (Version 2)
Quarter: 2023Q1

REPORT INFORMATION
  Report Type: Spontaneous
  Country: AU (occurrence: AU)
  Receive Date: 20221011
  Receipt Date: 20230323
  Transmission Date: 20230417
  Serious: Yes (Other)
  Sender: FDA-Public Use
  Company Number: AU-BAUSCHBL-2022BNL000971

PATIENT
  Age: 2 Year
  Sex: Male

DRUGS (4)
  1. PREDNISOLONE [Suspect]
     Active Substance: PREDNISOLONE
     Indication: Opsoclonus myoclonus
     Route: 065
  2. AZATHIOPRINE [Suspect]
     Active Substance: AZATHIOPRINE
     Indication: Ataxia
     Route: 065
  3. AZATHIOPRINE [Suspect]
     Active Substance: AZATHIOPRINE
     Indication: Opsoclonus myoclonus
  4. PREDNISOLONE [Suspect]
     Active Substance: PREDNISOLONE
     Indication: Opsoclonus myoclonus
     Dosage: INTERVAL: 1 DAY
     Route: 065

REACTIONS (3)
  - Pneumatosis intestinalis [Recovered/Resolved]
  - Intussusception [Recovered/Resolved]
  - Off label use [Unknown]
